FAERS Safety Report 7794260-7 (Version None)
Quarter: 2011Q4

REPORT INFORMATION
  Report Type: 
  Country: None (occurrence: None)
  Receive Date: 20111004
  Receipt Date: 20110927
  Transmission Date: 20120403
  Serious: Yes (Other)
  Sender: FDA-Public Use
  Company Number: GB-ASTELLAS-2011EU006112

PATIENT
  Sex: Female

DRUGS (8)
  1. ZOLADEX [Concomitant]
     Indication: ADENOMYOSIS
     Dosage: 3.6 MG, MONTHLY
     Route: 058
     Dates: start: 20110720, end: 20110906
  2. VESICARE [Suspect]
     Indication: POLLAKIURIA
     Dosage: 5 MG, UID/QD
     Route: 048
     Dates: start: 20110309
  3. ESCITALOPRAM [Concomitant]
     Indication: DEPRESSION
     Dosage: UNK
     Route: 048
     Dates: start: 20110526
  4. LANSOPRAZOLE [Concomitant]
     Indication: DYSPEPSIA
     Dosage: 15 MG, UID/QD
     Route: 048
     Dates: start: 20080903
  5. AMITRIPTYLINE HCL [Concomitant]
     Indication: ABDOMINAL PAIN
     Dosage: UNK
     Route: 048
     Dates: start: 20040316
  6. GABAPENTIN [Concomitant]
     Indication: ADHESION
     Dosage: 300 MG, TID
     Route: 048
     Dates: start: 20110418
  7. LEVOTHYROXINE [Concomitant]
     Indication: HYPOTHYROIDISM
     Dosage: 50 MG, UID/QD
     Route: 048
     Dates: start: 20110823
  8. AUGMENTIN '125' [Concomitant]
     Indication: PROPHYLAXIS URINARY TRACT INFECTION
     Dosage: 100 MG, UID/QD
     Route: 048
     Dates: start: 20110526

REACTIONS (3)
  - HYPOTHYROIDISM [None]
  - WHITE BLOOD CELL COUNT DECREASED [None]
  - NEUTROPENIA [None]
